FAERS Safety Report 20661789 (Version 14)
Quarter: 2025Q2

REPORT INFORMATION
  Report Type: Spontaneous
  Country: GB (occurrence: GB)
  Receive Date: 20220401
  Receipt Date: 20250623
  Transmission Date: 20250717
  Serious: Yes (Death, Life-Threatening, Hospitalization, Disabling, Other)
  Sender: ALKEM
  Company Number: None

PATIENT
  Age: 31 Year
  Sex: Female
  Weight: 63.5 kg

DRUGS (58)
  1. QUETIAPINE FUMARATE [Interacting]
     Active Substance: QUETIAPINE FUMARATE
     Indication: Psychotic disorder
     Route: 048
     Dates: start: 19990801
  2. QUETIAPINE FUMARATE [Interacting]
     Active Substance: QUETIAPINE FUMARATE
     Route: 048
  3. QUETIAPINE FUMARATE [Interacting]
     Active Substance: QUETIAPINE FUMARATE
     Route: 048
  4. DOMPERIDONE [Interacting]
     Active Substance: DOMPERIDONE
     Indication: Product used for unknown indication
     Route: 065
  5. DOMPERIDONE [Interacting]
     Active Substance: DOMPERIDONE
     Route: 048
  6. OMEPRAZOLE [Interacting]
     Active Substance: OMEPRAZOLE
     Indication: Dyspepsia
     Route: 048
  7. AMITRIPTYLINE [Interacting]
     Active Substance: AMITRIPTYLINE
     Indication: Muscle spasms
     Route: 065
  8. AMITRIPTYLINE [Interacting]
     Active Substance: AMITRIPTYLINE
     Indication: Serotonin syndrome
     Route: 065
  9. AMITRIPTYLINE [Interacting]
     Active Substance: AMITRIPTYLINE
     Indication: Neuralgia
     Route: 065
  10. AMITRIPTYLINE [Interacting]
     Active Substance: AMITRIPTYLINE
     Indication: Drug withdrawal syndrome
  11. CLONAZEPAM [Interacting]
     Active Substance: CLONAZEPAM
     Indication: Sedation
     Route: 048
  12. CODEINE [Interacting]
     Active Substance: CODEINE
     Indication: Serotonin syndrome
     Route: 048
  13. CODEINE [Interacting]
     Active Substance: CODEINE
     Indication: Analgesic therapy
     Route: 048
  14. CODEINE [Interacting]
     Active Substance: CODEINE
     Route: 048
  15. CODEINE [Interacting]
     Active Substance: CODEINE
     Route: 048
  16. CODEINE [Interacting]
     Active Substance: CODEINE
     Route: 048
  17. DIAZEPAM [Interacting]
     Active Substance: DIAZEPAM
     Indication: Muscle spasms
     Route: 065
  18. DIAZEPAM [Interacting]
     Active Substance: DIAZEPAM
     Indication: Serotonin syndrome
     Route: 048
  19. DIAZEPAM [Interacting]
     Active Substance: DIAZEPAM
     Indication: Depression
     Route: 048
  20. DIAZEPAM [Interacting]
     Active Substance: DIAZEPAM
     Route: 048
  21. LORAZEPAM [Interacting]
     Active Substance: LORAZEPAM
     Indication: Sedation
     Route: 048
  22. LORAZEPAM [Interacting]
     Active Substance: LORAZEPAM
     Route: 048
  23. LORAZEPAM [Interacting]
     Active Substance: LORAZEPAM
     Route: 048
  24. LORAZEPAM [Interacting]
     Active Substance: LORAZEPAM
     Route: 048
  25. LORAZEPAM [Interacting]
     Active Substance: LORAZEPAM
     Route: 048
  26. LORAZEPAM [Interacting]
     Active Substance: LORAZEPAM
     Route: 048
  27. LORAZEPAM [Interacting]
     Active Substance: LORAZEPAM
     Route: 048
  28. MIRTAZAPINE [Interacting]
     Active Substance: MIRTAZAPINE
     Indication: Psychotic disorder
     Route: 048
  29. MIRTAZAPINE [Interacting]
     Active Substance: MIRTAZAPINE
     Indication: Depression
     Route: 048
  30. MIRTAZAPINE [Interacting]
     Active Substance: MIRTAZAPINE
     Route: 048
  31. MIRTAZAPINE [Interacting]
     Active Substance: MIRTAZAPINE
     Route: 048
  32. PAROXETINE [Interacting]
     Active Substance: PAROXETINE
     Indication: Depression
     Route: 048
  33. PAROXETINE [Interacting]
     Active Substance: PAROXETINE
     Indication: Post-traumatic stress disorder
     Route: 048
  34. PAROXETINE [Interacting]
     Active Substance: PAROXETINE
     Route: 048
  35. PAROXETINE [Interacting]
     Active Substance: PAROXETINE
     Dosage: 60 MILLIGRAM, QD
     Route: 048
     Dates: start: 1997
  36. PAROXETINE [Interacting]
     Active Substance: PAROXETINE
     Route: 048
  37. PAROXETINE [Interacting]
     Active Substance: PAROXETINE
     Route: 048
     Dates: start: 199908
  38. PAROXETINE [Interacting]
     Active Substance: PAROXETINE
     Route: 048
     Dates: start: 1996
  39. PAROXETINE [Interacting]
     Active Substance: PAROXETINE
     Route: 048
  40. PAROXETINE [Interacting]
     Active Substance: PAROXETINE
     Dosage: 20 MILLIGRAM, BID
     Route: 048
  41. PAROXETINE [Interacting]
     Active Substance: PAROXETINE
     Route: 048
  42. PAROXETINE [Interacting]
     Active Substance: PAROXETINE
     Route: 048
  43. PAROXETINE [Interacting]
     Active Substance: PAROXETINE
     Route: 048
  44. PAROXETINE [Interacting]
     Active Substance: PAROXETINE
     Route: 048
  45. PAROXETINE [Interacting]
     Active Substance: PAROXETINE
     Route: 048
  46. PHOSPHORUS [Interacting]
     Active Substance: PHOSPHORUS
     Indication: Product used for unknown indication
     Route: 065
  47. PROCYCLIDINE [Interacting]
     Active Substance: PROCYCLIDINE
     Indication: Oculogyric crisis
     Route: 048
  48. PROCYCLIDINE [Interacting]
     Active Substance: PROCYCLIDINE
     Indication: Extrapyramidal disorder
     Route: 048
  49. PROCYCLIDINE [Interacting]
     Active Substance: PROCYCLIDINE
     Route: 048
  50. PROCYCLIDINE [Interacting]
     Active Substance: PROCYCLIDINE
     Route: 048
  51. PROCYCLIDINE [Interacting]
     Active Substance: PROCYCLIDINE
     Route: 048
  52. PROCYCLIDINE [Interacting]
     Active Substance: PROCYCLIDINE
     Route: 048
     Dates: start: 1995
  53. PROCYCLIDINE [Interacting]
     Active Substance: PROCYCLIDINE
     Route: 048
     Dates: start: 1995
  54. TRAMADOL [Interacting]
     Active Substance: TRAMADOL
     Indication: Neck pain
     Route: 044
  55. TRAMADOL [Interacting]
     Active Substance: TRAMADOL
     Indication: Back pain
     Route: 048
  56. TRAMADOL [Interacting]
     Active Substance: TRAMADOL
     Indication: Analgesic therapy
     Route: 048
  57. TRAMADOL [Interacting]
     Active Substance: TRAMADOL
     Indication: Oculogyric crisis
     Route: 048
  58. TRAMADOL [Interacting]
     Active Substance: TRAMADOL
     Indication: Pain

REACTIONS (111)
  - Cyanosis [Fatal]
  - Feeling of despair [Unknown]
  - Menstrual disorder [Unknown]
  - Feeling jittery [Unknown]
  - Parosmia [Unknown]
  - Feeling of body temperature change [Unknown]
  - Mania [Unknown]
  - Muscle disorder [Unknown]
  - Hypoaesthesia oral [Unknown]
  - Paralysis [Not Recovered/Not Resolved]
  - Psychotic disorder [Recovered/Resolved]
  - Vision blurred [Unknown]
  - Pruritus [Unknown]
  - Swelling face [Unknown]
  - Emotional disorder [Unknown]
  - Depersonalisation/derealisation disorder [Not Recovered/Not Resolved]
  - Tinnitus [Unknown]
  - Hallucination [Unknown]
  - Hallucinations, mixed [Unknown]
  - Sensory loss [Unknown]
  - Sleep disorder [Unknown]
  - Aphasia [Not Recovered/Not Resolved]
  - Heart rate increased [Unknown]
  - Contusion [Unknown]
  - Eye pain [Unknown]
  - H1N1 influenza [Unknown]
  - Delirium [Unknown]
  - Dissociation [Not Recovered/Not Resolved]
  - Gait disturbance [Unknown]
  - Serotonin syndrome [Not Recovered/Not Resolved]
  - Incontinence [Not Recovered/Not Resolved]
  - Limb injury [Unknown]
  - Muscle spasms [Not Recovered/Not Resolved]
  - Illness [Unknown]
  - Schizophrenia [Unknown]
  - Gastric pH decreased [Unknown]
  - Skin discolouration [Not Recovered/Not Resolved]
  - Visual impairment [Unknown]
  - Toxicity to various agents [Unknown]
  - Decreased appetite [Unknown]
  - Disorientation [Not Recovered/Not Resolved]
  - Premature labour [Unknown]
  - Derealisation [Not Recovered/Not Resolved]
  - Balance disorder [Unknown]
  - Arthralgia [Unknown]
  - Dizziness [Unknown]
  - Dyskinesia [Unknown]
  - Seizure [Unknown]
  - Anxiety [Unknown]
  - Blood sodium decreased [Unknown]
  - Diarrhoea [Unknown]
  - Fatigue [Unknown]
  - Muscle rigidity [Unknown]
  - Dyspnoea [Unknown]
  - Hyperhidrosis [Unknown]
  - Tremor [Not Recovered/Not Resolved]
  - Neuroleptic malignant syndrome [Unknown]
  - Musculoskeletal stiffness [Not Recovered/Not Resolved]
  - Drug withdrawal syndrome [Unknown]
  - Pallor [Unknown]
  - Depression [Unknown]
  - Pyrexia [Unknown]
  - Vomiting [Unknown]
  - Restlessness [Unknown]
  - Tachycardia [Unknown]
  - Urinary retention [Unknown]
  - Headache [Not Recovered/Not Resolved]
  - Somnolence [Not Recovered/Not Resolved]
  - Paraesthesia [Not Recovered/Not Resolved]
  - Confusional state [Not Recovered/Not Resolved]
  - Cogwheel rigidity [Unknown]
  - Agitation [Unknown]
  - Speech disorder [Unknown]
  - Asthenia [Unknown]
  - Dystonia [Unknown]
  - Suicidal ideation [Not Recovered/Not Resolved]
  - Hypoaesthesia [Not Recovered/Not Resolved]
  - Mood swings [Unknown]
  - Drooling [Unknown]
  - Nightmare [Unknown]
  - Restless legs syndrome [Not Recovered/Not Resolved]
  - Aphasia [Not Recovered/Not Resolved]
  - Paralysis [Unknown]
  - Disturbance in attention [Unknown]
  - Cyanosis [Not Recovered/Not Resolved]
  - Swollen tongue [Unknown]
  - Eye pain [Unknown]
  - Contusion [Unknown]
  - Somnolence [Not Recovered/Not Resolved]
  - Seizure [Unknown]
  - Nightmare [Unknown]
  - Toxicity to various agents [Unknown]
  - Muscle spasms [Unknown]
  - Schizophrenia [Not Recovered/Not Resolved]
  - Dizziness [Unknown]
  - Pallor [Unknown]
  - Dystonia [Unknown]
  - Speech disorder [Unknown]
  - Contusion [Not Recovered/Not Resolved]
  - Premature labour [Not Recovered/Not Resolved]
  - Premature labour [Unknown]
  - Product ineffective [Unknown]
  - Drug ineffective [Unknown]
  - Exposure during pregnancy [Unknown]
  - Drug interaction [Unknown]
  - Drug interaction [Unknown]
  - Maternal exposure during pregnancy [Unknown]
  - Exposure during pregnancy [Unknown]
  - Off label use [Unknown]
  - Product ineffective [Unknown]
  - Drug ineffective [Unknown]

NARRATIVE: CASE EVENT DATE: 20030101
